FAERS Safety Report 13320087 (Version 1)
Quarter: 2017Q1

REPORT INFORMATION
  Report Type: Report from Study
  Country: CA (occurrence: CA)
  Receive Date: 20170310
  Receipt Date: 20170310
  Transmission Date: 20170428
  Serious: Yes (Life-Threatening, Hospitalization, Other)
  Sender: FDA-Public Use
  Company Number: CA-INCYTE CORPORATION-2014IN003261

PATIENT
  Age: 62 Year
  Sex: Female

DRUGS (9)
  1. OMEPRAZOLE. [Concomitant]
     Active Substance: OMEPRAZOLE
     Route: 065
  2. EPREX [Concomitant]
     Active Substance: ERYTHROPOIETIN
     Dosage: 40 MG
     Route: 065
  3. EPREX [Concomitant]
     Active Substance: ERYTHROPOIETIN
     Dosage: 40 MG
  4. JAKAVI [Suspect]
     Active Substance: RUXOLITINIB
     Indication: MYELOFIBROSIS
     Dosage: 20 MG, BID
     Route: 048
     Dates: start: 20140703
  5. JAKAVI [Suspect]
     Active Substance: RUXOLITINIB
     Dosage: 10 MG, QD
     Route: 048
  6. JAKAVI [Suspect]
     Active Substance: RUXOLITINIB
     Dosage: 20 MG, QOD (EVERY SECOND DAY)
     Route: 048
  7. ASA [Concomitant]
     Active Substance: ASPIRIN
     Indication: PRODUCT USED FOR UNKNOWN INDICATION
     Route: 065
  8. EPREX [Concomitant]
     Active Substance: ERYTHROPOIETIN
     Indication: PRODUCT USED FOR UNKNOWN INDICATION
     Dosage: UNK
     Route: 065
  9. OMEPRAZOLE. [Concomitant]
     Active Substance: OMEPRAZOLE
     Indication: PRODUCT USED FOR UNKNOWN INDICATION
     Dosage: UNK
     Route: 065

REACTIONS (17)
  - Fall [Unknown]
  - Jaundice [Unknown]
  - Chest injury [Unknown]
  - Fatigue [Unknown]
  - Asthenia [Unknown]
  - Nausea [Unknown]
  - Splenomegaly [Unknown]
  - Contusion [Unknown]
  - Herpes zoster [Recovered/Resolved]
  - Pneumonitis [Unknown]
  - Delirium [Recovering/Resolving]
  - Haemoglobin decreased [Unknown]
  - Blood pressure systolic increased [Unknown]
  - Apparent death [Unknown]
  - Haematoma [Recovering/Resolving]
  - Impaired gastric emptying [Unknown]
  - Dizziness [Unknown]

NARRATIVE: CASE EVENT DATE: 20141030
